FAERS Safety Report 7699015-X (Version None)
Quarter: 2011Q3

REPORT INFORMATION
  Report Type: 
  Country: None (occurrence: None)
  Receive Date: 20110819
  Receipt Date: 20110812
  Transmission Date: 20111222
  Serious: Yes (Hospitalization, Other)
  Sender: FDA-Public Use
  Company Number: US-ROCHE-776491

PATIENT
  Sex: Male
  Weight: 88.5 kg

DRUGS (3)
  1. ACCUTANE [Suspect]
     Indication: ACNE
     Route: 065
     Dates: start: 19980430, end: 19981001
  2. KEFLEX [Concomitant]
  3. ACCUTANE [Suspect]
     Route: 065
     Dates: start: 19990722, end: 19991201

REACTIONS (5)
  - BACK PAIN [None]
  - COLONIC POLYP [None]
  - EPISTAXIS [None]
  - COLITIS ULCERATIVE [None]
  - LIP DRY [None]
